FAERS Safety Report 7090288-3 (Version None)
Quarter: 2010Q4

REPORT INFORMATION
  Report Type: 
  Country: None (occurrence: None)
  Receive Date: 20101109
  Receipt Date: 20101027
  Transmission Date: 20110411
  Serious: Yes (Hospitalization, Other)
  Sender: FDA-Public Use
  Company Number: US-ASTRAZENECA-2010SE39940

PATIENT
  Age: 82 Year
  Sex: Male
  Weight: 82.6 kg

DRUGS (21)
  1. SYMBICORT [Suspect]
     Dosage: 640 MG BID
     Route: 055
     Dates: start: 20090101
  2. NEXIUM [Suspect]
     Indication: DYSPEPSIA
     Route: 048
     Dates: start: 20020101
  3. SPIRIVA [Concomitant]
  4. GENERIC AMBIEN [Concomitant]
  5. PRAVASTATIN [Concomitant]
  6. LISINOPRIL [Concomitant]
  7. TRENTAL [Concomitant]
     Indication: VEIN DISORDER
  8. COREG [Concomitant]
  9. LORTAB [Concomitant]
  10. ASPIRIN [Concomitant]
  11. MILERDINE [Concomitant]
  12. NAMENDA [Concomitant]
  13. NITROGLYCERIN [Concomitant]
  14. POTASSIUM CHLORIDE [Concomitant]
  15. TERAZOSIN HCL [Concomitant]
  16. ADVIL [Concomitant]
     Dosage: AS NEEDED
  17. NAPROXEN [Concomitant]
     Dosage: AS NEEDED
  18. AMBIEN [Concomitant]
     Dosage: AS NEEDED
  19. LASIX [Concomitant]
  20. COMBIVENT [Concomitant]
     Dosage: 2 PUFFS QID
  21. ASPIRIN [Concomitant]

REACTIONS (5)
  - CARDIAC FAILURE [None]
  - CORONARY ARTERY OCCLUSION [None]
  - HEART VALVE REPLACEMENT [None]
  - HYPOTENSION [None]
  - MYOCARDIAL INFARCTION [None]
